FAERS Safety Report 9627085 (Version 1)
Quarter: 2013Q4

REPORT INFORMATION
  Report Type: Spontaneous
  Country: US (occurrence: US)
  Receive Date: 20131016
  Receipt Date: 20131016
  Transmission Date: 20140711
  Serious: No
  Sender: FDA-Public Use
  Company Number: US-009507513-1309USA010510

PATIENT
  Age: 22 Year
  Sex: Female
  Weight: 93.42 kg

DRUGS (2)
  1. NEXPLANON [Suspect]
     Indication: CONTRACEPTION
     Dosage: 1 ROD
     Route: 059
     Dates: start: 20130130
  2. ZONEGRAN [Concomitant]

REACTIONS (3)
  - Nausea [Not Recovered/Not Resolved]
  - Device kink [Unknown]
  - Product quality issue [Unknown]
